FAERS Safety Report 6260210-8 (Version None)
Quarter: 2009Q3

REPORT INFORMATION
  Report Type: 
  Country: None (occurrence: None)
  Receive Date: 20090708
  Receipt Date: 20090304
  Transmission Date: 20100115
  Serious: Yes (Hospitalization)
  Sender: FDA-Public Use
  Company Number: B0582604A

PATIENT
  Age: 81 Year
  Sex: Male
  Weight: 80 kg

DRUGS (7)
  1. OMACOR [Suspect]
     Dosage: 1000MG PER DAY
     Route: 048
     Dates: start: 20050205, end: 20050510
  2. BETA BLOCKER [Concomitant]
  3. ACE INHIBITOR [Concomitant]
  4. DIURETIC [Concomitant]
  5. STATINS [Concomitant]
  6. ASPIRIN [Concomitant]
  7. CLOPIDOGREL [Concomitant]

REACTIONS (2)
  - CARDIAC FAILURE [None]
  - VENTRICULAR TACHYARRHYTHMIA [None]
